FAERS Safety Report 20974543 (Version 2)
Quarter: 2022Q2

REPORT INFORMATION
  Report Type: Spontaneous
  Country: JP (occurrence: JP)
  Receive Date: 20220617
  Receipt Date: 20220629
  Transmission Date: 20220721
  Serious: Yes (Hospitalization, Other)
  Sender: FDA-Public Use
  Company Number: JP-Accord-265758

PATIENT
  Age: 8 Decade
  Sex: Female
  Weight: 60 kg

DRUGS (2)
  1. METHOTREXATE [Suspect]
     Active Substance: METHOTREXATE
     Indication: Rheumatoid arthritis
     Dosage: 6 MG/WEEK FOR 1 YEAR AND 9 MONTHS
     Dates: start: 201912, end: 202108
  2. FOLIC ACID [Concomitant]
     Active Substance: FOLIC ACID
     Dates: start: 201912

REACTIONS (8)
  - Hepatic cirrhosis [Recovered/Resolved]
  - Malaise [Recovered/Resolved]
  - Decreased appetite [Recovered/Resolved]
  - Pyrexia [Unknown]
  - Urinary tract infection [Unknown]
  - Abdominal distension [Recovered/Resolved]
  - Splenomegaly [Unknown]
  - Portal hypertension [Recovering/Resolving]

NARRATIVE: CASE EVENT DATE: 20210601
